FAERS Safety Report 16301947 (Version 2)
Quarter: 2019Q2

REPORT INFORMATION
  Report Type: Report from Study
  Country: TW (occurrence: TW)
  Receive Date: 20190512
  Receipt Date: 20190524
  Transmission Date: 20190711
  Serious: Yes (Other)
  Sender: FDA-Public Use
  Company Number: PHHY2019TW106901

PATIENT
  Age: 28 Year
  Sex: Male

DRUGS (16)
  1. TASIGNA [Suspect]
     Active Substance: NILOTINIB
     Indication: CHRONIC MYELOID LEUKAEMIA
     Dosage: 600 OT, UNK
     Route: 048
     Dates: start: 20160630
  2. FEBUXOSTAT. [Concomitant]
     Active Substance: FEBUXOSTAT
     Indication: CHRONIC MYELOID LEUKAEMIA
     Dosage: 40 MG, UNK
     Route: 048
     Dates: start: 20160629, end: 20160717
  3. FUSIDATE [Concomitant]
     Active Substance: FUSIDATE SODIUM
     Indication: SURGERY
     Dosage: UNK
     Route: 061
     Dates: start: 20170515, end: 20170522
  4. LIDOCAINE. [Concomitant]
     Active Substance: LIDOCAINE
     Indication: SURGERY
     Dosage: 2 ML, UNK
     Route: 058
     Dates: start: 20170515, end: 20170515
  5. IWELL [Concomitant]
     Dosage: 2 DF, UNK
     Route: 048
     Dates: start: 20160711, end: 20160731
  6. LIDOCAINE. [Concomitant]
     Active Substance: LIDOCAINE
     Dosage: 20 ML, UNK
     Route: 061
     Dates: start: 20160715, end: 20160715
  7. ULTRACET [Concomitant]
     Active Substance: ACETAMINOPHEN\TRAMADOL HYDROCHLORIDE
     Indication: PENILE PAIN
     Dosage: 1 DF, UNK
     Route: 048
     Dates: start: 20160705, end: 20160731
  8. ACETAMINOPHEN. [Concomitant]
     Active Substance: ACETAMINOPHEN
     Indication: SURGERY
     Dosage: 500 MG, UNK
     Route: 048
     Dates: start: 20170515, end: 20170517
  9. BIOMYCIN [Concomitant]
     Indication: SURGERY
     Dosage: UNK
     Route: 061
     Dates: start: 20160805, end: 20160812
  10. CEPHALEXIN. [Concomitant]
     Active Substance: CEPHALEXIN
     Indication: SURGERY
     Dosage: 500 MG, UNK
     Route: 048
     Dates: start: 20160715, end: 20160720
  11. DICLOFENAC [Concomitant]
     Active Substance: DICLOFENAC
     Indication: PENILE PAIN
     Dosage: 25 MG, UNK
     Route: 048
     Dates: start: 20160701, end: 20160705
  12. EPINEPHRINE. [Concomitant]
     Active Substance: EPINEPHRINE
     Indication: PRIAPISM
     Dosage: 1 MG, UNK
     Route: 042
     Dates: start: 20160629, end: 20160629
  13. IWELL [Concomitant]
     Indication: PROPHYLAXIS
     Dosage: 1 DF, UNK
     Route: 048
     Dates: start: 20160703, end: 20160710
  14. DICLOFENAC [Concomitant]
     Active Substance: DICLOFENAC
     Dosage: 25 MG, UNK
     Route: 048
     Dates: start: 20160711, end: 20160725
  15. HYDROXYUREA. [Concomitant]
     Active Substance: HYDROXYUREA
     Indication: CHRONIC MYELOID LEUKAEMIA
     Dosage: 1000 MG, UNK
     Route: 048
     Dates: start: 20160629, end: 20160702
  16. SENNOSIDE [Concomitant]
     Active Substance: SENNOSIDES
     Indication: CONSTIPATION PROPHYLAXIS
     Dosage: 24 MG, UNK
     Route: 048
     Dates: start: 20160702, end: 20160717

REACTIONS (1)
  - Hyperbilirubinaemia [Recovered/Resolved]

NARRATIVE: CASE EVENT DATE: 20190311
